FAERS Safety Report 9391240 (Version 2)
Quarter: 2014Q4

REPORT INFORMATION
  Report Type: Report from Study
  Country: NL (occurrence: NL)
  Receive Date: 20130709
  Receipt Date: 20141027
  Transmission Date: 20150529
  Serious: Yes (Hospitalization, Other)
  Sender: FDA-Public Use
  Company Number: NL-009507513-1211NLD007198

PATIENT
  Age: 80 Year
  Sex: Female
  Weight: 84 kg

DRUGS (14)
  1. PANTOPRAZOLE [Suspect]
     Active Substance: PANTOPRAZOLE SODIUM
     Dosage: 40 MG TOTAL DAILY
     Route: 048
     Dates: start: 20120826, end: 20121113
  2. PHENPROCOUMON [Concomitant]
     Active Substance: PHENPROCOUMON
     Dosage: 3 MG, PRN
     Route: 048
     Dates: start: 20120817
  3. LISINOPRIL. [Concomitant]
     Active Substance: LISINOPRIL
     Dosage: 20 MG TOTAL DAILY
     Route: 048
     Dates: start: 20111207, end: 20121113
  4. LOPERAMIDE HYDROCHLORIDE. [Concomitant]
     Active Substance: LOPERAMIDE HYDROCHLORIDE
     Dosage: 1 MG, PRN
     Route: 048
     Dates: start: 20121015
  5. TOLBUTAMIDE. [Concomitant]
     Active Substance: TOLBUTAMIDE
     Dosage: 1000 MG TOTAL DAILY
     Route: 048
     Dates: start: 20070502
  6. FUROSEMIDE. [Suspect]
     Active Substance: FUROSEMIDE
     Dosage: 40 MG TOTAL DAILY
     Route: 048
     Dates: start: 20121005, end: 20121113
  7. SPIRONOLACTONE. [Suspect]
     Active Substance: SPIRONOLACTONE
     Dosage: 25 MG TOTAL DAILY
     Route: 048
     Dates: start: 20120930, end: 20121113
  8. ISOSORBIDE MONONITRATE. [Concomitant]
     Active Substance: ISOSORBIDE MONONITRATE
     Dosage: 50 MG TOTAL DAILY
     Route: 048
     Dates: start: 20120823
  9. ACTONEL [Concomitant]
     Active Substance: RISEDRONATE SODIUM
     Dosage: 35 MG, QW
     Route: 048
     Dates: start: 20100810
  10. CARVEDILOL. [Concomitant]
     Active Substance: CARVEDILOL
     Dosage: 25 MG TOTAL DAILY
     Route: 048
     Dates: start: 20121001
  11. SIMVASTATIN. [Suspect]
     Active Substance: SIMVASTATIN
     Indication: ACUTE CORONARY SYNDROME
     Dosage: UNK
     Route: 048
     Dates: start: 20070502
  12. NITROGLYCERIN. [Concomitant]
     Active Substance: NITROGLYCERIN
     Dosage: 0.4 MG, PRN
     Route: 060
     Dates: start: 20120903
  13. METFORMIN [Concomitant]
     Active Substance: METFORMIN HYDROCHLORIDE
     Dosage: 2000 MG TOTAL DAILY
     Route: 048
     Dates: start: 20070505, end: 20121113
  14. TICAGRELOR [Concomitant]
     Active Substance: TICAGRELOR
     Dosage: 180 MG TOTAL DAILY
     Route: 048
     Dates: start: 20120817

REACTIONS (2)
  - Renal failure [Recovered/Resolved]
  - Renal neoplasm [Recovered/Resolved]

NARRATIVE: CASE EVENT DATE: 20121109
